FAERS Safety Report 18627747 (Version 1)
Quarter: 2020Q4

REPORT INFORMATION
  Report Type: Spontaneous
  Country: US (occurrence: US)
  Receive Date: 20201217
  Receipt Date: 20201217
  Transmission Date: 20210114
  Serious: Yes (Hospitalization)
  Sender: FDA-Public Use
  Company Number: US-MYLANLABS-2020M1102799

PATIENT
  Age: 7 Week
  Sex: Female
  Weight: 4.8 kg

DRUGS (5)
  1. EPINEPHRINE. [Suspect]
     Active Substance: EPINEPHRINE
     Indication: LOCAL ANAESTHESIA
     Dosage: 250 MICROGRAM ,SHE RECEIVED 0.5ML OF SOLUTION CONTAINING 2 ML OF EPINEPHRINE..
     Route: 065
  2. ROCURONIUM [Concomitant]
     Active Substance: ROCURONIUM BROMIDE
     Indication: ANAESTHESIA
     Dosage: 0.6 MILLIGRAM/KILOGRAM
     Route: 065
  3. SEVOFLURANE. [Concomitant]
     Active Substance: SEVOFLURANE
     Indication: ANAESTHESIA
     Dosage: INHALATIONAL ANAESTHESIA
  4. NITROUS OXIDE. [Concomitant]
     Active Substance: NITROUS OXIDE
     Indication: ANAESTHESIA
     Dosage: INHALATIONAL ANAESTHESIA
  5. BUPIVACAINE. [Concomitant]
     Active Substance: BUPIVACAINE
     Indication: LOCAL ANAESTHESIA
     Dosage: SHE RECEIVED 0.5ML OF SOLUTION CONTAINING..
     Route: 065

REACTIONS (6)
  - Accidental overdose [Recovered/Resolved]
  - Heart injury [Recovered/Resolved]
  - Incorrect dose administered [Recovered/Resolved]
  - Haemodynamic instability [Recovered/Resolved]
  - Incorrect route of product administration [Recovered/Resolved]
  - Product preparation error [Recovered/Resolved]
